FAERS Safety Report 26081891 (Version 1)
Quarter: 2025Q4

REPORT INFORMATION
  Report Type: Spontaneous
  Country: JP (occurrence: JP)
  Receive Date: 20251124
  Receipt Date: 20251124
  Transmission Date: 20260118
  Serious: Yes (Other)
  Sender: ABBVIE
  Company Number: JP-ABBVIE-6557364

PATIENT

DRUGS (2)
  1. SKYRIZI [Suspect]
     Active Substance: RISANKIZUMAB-RZAA
     Indication: Crohn^s disease
     Route: 058
  2. SKYRIZI [Suspect]
     Active Substance: RISANKIZUMAB-RZAA
     Indication: Crohn^s disease
     Dosage: FORM STRENGTH: 600 MILLIGRAM
     Route: 041

REACTIONS (8)
  - Surgery [Unknown]
  - Malaise [Unknown]
  - Injection site urticaria [Unknown]
  - Headache [Unknown]
  - Liver disorder [Unknown]
  - Stomatitis [Recovered/Resolved]
  - Oral herpes [Unknown]
  - Drug ineffective [Unknown]
